FAERS Safety Report 6796947-1 (Version None)
Quarter: 2010Q2

REPORT INFORMATION
  Report Type: 
  Country: None (occurrence: None)
  Receive Date: 20100618
  Receipt Date: 20100611
  Transmission Date: 20101027
  Serious: Yes (Death)
  Sender: FDA-Public Use
  Company Number: 2010SP033806

PATIENT
  Sex: 0

DRUGS (1)
  1. NUVARING [Suspect]
     Indication: PREGNANCY
     Dosage: TRPL
     Route: 064

REACTIONS (3)
  - INTRA-UTERINE DEATH [None]
  - MATERNAL DRUGS AFFECTING FOETUS [None]
  - SMALL FOR DATES BABY [None]
